FAERS Safety Report 7764314-X (Version None)
Quarter: 2011Q3

REPORT INFORMATION
  Report Type: 
  Country: None (occurrence: None)
  Receive Date: 20110920
  Receipt Date: 20110920
  Transmission Date: 20111222
  Serious: Yes (Other)
  Sender: FDA-Public Use
  Company Number: None

PATIENT
  Age: 80 Year
  Sex: Male

DRUGS (1)
  1. AZACITIDINE [Suspect]
     Dates: start: 20110509

REACTIONS (2)
  - INFUSION SITE PHLEBITIS [None]
  - INFUSION SITE PRURITUS [None]
